FAERS Safety Report 5724376-8 (Version None)
Quarter: 2008Q2

REPORT INFORMATION
  Report Type: 
  Country: None (occurrence: None)
  Receive Date: 20080430
  Receipt Date: 20080421
  Transmission Date: 20081010
  Serious: Yes (Other)
  Sender: FDA-Public Use
  Company Number: US-PFIZER INC-2008035073

PATIENT
  Sex: Male
  Weight: 83.9 kg

DRUGS (1)
  1. BEXTRA [Suspect]
     Indication: JOINT SWELLING

REACTIONS (4)
  - CHEST PAIN [None]
  - GASTRIC ULCER HAEMORRHAGE [None]
  - NERVOUSNESS [None]
  - RENAL DISORDER [None]
